FAERS Safety Report 12261995 (Version 1)
Quarter: 2016Q2

REPORT INFORMATION
  Report Type: Report from Study
  Country: US (occurrence: US)
  Receive Date: 20160413
  Receipt Date: 20160413
  Transmission Date: 20160815
  Serious: No
  Sender: FDA-Public Use
  Company Number: ADR-2014-00781

PATIENT
  Age: 73 Year
  Sex: Female

DRUGS (6)
  1. BUPIVACAINE. [Suspect]
     Active Substance: BUPIVACAINE
     Dosage: 6.004 MG/DAY
     Route: 037
     Dates: end: 20140324
  2. COMPOUNDED BACLOFEN [Suspect]
     Active Substance: BACLOFEN
     Dosage: 12.008 MCG/DAY
     Route: 037
     Dates: end: 20140324
  3. MORPHINE [Suspect]
     Active Substance: MORPHINE
     Dosage: 2.001MG/DAY
     Route: 037
     Dates: end: 20140324
  4. BUPIVACAINE. [Suspect]
     Active Substance: BUPIVACAINE
     Dosage: 7.509MG/DAY
     Route: 037
     Dates: start: 20140324
  5. COMPOUNDED BACLOFEN [Suspect]
     Active Substance: BACLOFEN
     Dosage: 12.515MCG/DAY
     Route: 037
     Dates: start: 20140324, end: 20140605
  6. DILAUDID [Suspect]
     Active Substance: HYDROMORPHONE HYDROCHLORIDE
     Dosage: 0.5006MG/DAY
     Route: 037
     Dates: start: 20140324

REACTIONS (9)
  - Balance disorder [Recovered/Resolved]
  - Dizziness [Recovered/Resolved]
  - Toxicity to various agents [Recovered/Resolved]
  - Asthenia [Recovered/Resolved]
  - Muscular weakness [Recovered/Resolved]
  - Nausea [Recovered/Resolved]
  - Vomiting [Recovered/Resolved]
  - Adverse drug reaction [Recovered/Resolved]
  - Fall [Recovered/Resolved]

NARRATIVE: CASE EVENT DATE: 20140324
